FAERS Safety Report 6457107-7 (Version None)
Quarter: 2009Q4

REPORT INFORMATION
  Report Type: 
  Country: None (occurrence: None)
  Receive Date: 20091125
  Receipt Date: 20091117
  Transmission Date: 20100525
  Serious: Yes (Other)
  Sender: FDA-Public Use
  Company Number: B0599980A

PATIENT
  Sex: Male

DRUGS (6)
  1. CLAVAMOX [Suspect]
     Indication: OTITIS MEDIA ACUTE
     Dosage: 1.05G TWICE PER DAY
     Route: 048
     Dates: start: 20091023
  2. MUCODYNE [Concomitant]
     Dosage: 6ML PER DAY
     Route: 048
     Dates: start: 20091023
  3. NIPOLAZIN [Concomitant]
     Dosage: 6ML PER DAY
     Route: 048
     Dates: start: 20091023
  4. BIOFERMIN [Concomitant]
     Dosage: 1G PER DAY
     Route: 048
     Dates: start: 20091023
  5. KIPRES [Concomitant]
     Dosage: 4MG PER DAY
     Route: 048
     Dates: start: 20091019
  6. MEIACT [Concomitant]
     Route: 048
     Dates: start: 20091117

REACTIONS (8)
  - ANAPHYLACTIC REACTION [None]
  - BRONCHOSPASM [None]
  - COUGH [None]
  - EYELID OEDEMA [None]
  - OEDEMA PERIPHERAL [None]
  - PHARYNGEAL OEDEMA [None]
  - URTICARIA [None]
  - WHEEZING [None]
